FAERS Safety Report 5750809-7 (Version None)
Quarter: 2008Q2

REPORT INFORMATION
  Report Type: 
  Country: None (occurrence: None)
  Receive Date: 20080528
  Receipt Date: 20080522
  Transmission Date: 20081010
  Serious: Yes (Other)
  Sender: FDA-Public Use
  Company Number: A0729224A

PATIENT
  Age: 13 Year
  Sex: Female

DRUGS (2)
  1. LAMICTAL [Suspect]
     Indication: EPILEPSY
     Route: 048
     Dates: start: 20071001
  2. VITAMIN CAP [Concomitant]

REACTIONS (5)
  - CONVULSION [None]
  - FATIGUE [None]
  - LETHARGY [None]
  - SOMNOLENCE [None]
  - TREMOR [None]
